FAERS Safety Report 8885518 (Version 1)
Quarter: 2012Q4

REPORT INFORMATION
  Report Type: 
  Country: US (occurrence: US)
  Receive Date: 20121105
  Receipt Date: 20121105
  Transmission Date: 20130627
  Serious: Yes (Other)
  Sender: FDA-Public Use
  Company Number: US-PFIZER INC-2012274754

PATIENT
  Age: 74 Year
  Sex: Female

DRUGS (3)
  1. PRISTIQ [Suspect]
     Indication: DEPRESSION
     Dosage: 50 mg, daily
  2. PRISTIQ [Suspect]
     Dosage: 100 mg, daily
     Dates: end: 20121031
  3. BUSPAR [Suspect]
     Indication: DEPRESSION
     Dosage: UNK
     Dates: end: 20121031

REACTIONS (1)
  - Erythema multiforme [Unknown]
